FAERS Safety Report 17065623 (Version 1)
Quarter: 2019Q4

REPORT INFORMATION
  Report Type: Spontaneous
  Country: US (occurrence: US)
  Receive Date: 20191122
  Receipt Date: 20191122
  Transmission Date: 20200122
  Serious: Yes (Life-Threatening, Disabling, Other)
  Sender: FDA-Public Use
  Company Number: None

PATIENT
  Age: 61 Year
  Sex: Female
  Weight: 72.9 kg

DRUGS (17)
  1. HYDROCODONE/ACETIM [Concomitant]
  2. GLIMIPERIDE [Concomitant]
     Active Substance: GLIMEPIRIDE
  3. LISINOPRIL. [Concomitant]
     Active Substance: LISINOPRIL
  4. OXYBUTIN [Concomitant]
     Active Substance: OXYBUTYNIN
  5. FENOFIBRATE. [Concomitant]
     Active Substance: FENOFIBRATE
  6. PROPANOLOL HYDROXZINE PAM [Concomitant]
  7. ROPINOLE [Concomitant]
  8. ESCILAOPRAM [Concomitant]
  9. GABAPENTINE [Concomitant]
     Active Substance: GABAPENTIN
  10. PROGLITAZON [Concomitant]
  11. CRANBERY CAPS [Concomitant]
  12. CIPROFLOXACIN. [Suspect]
     Active Substance: CIPROFLOXACIN
     Indication: URINARY TRACT INFECTION
     Dosage: ?          QUANTITY:1 CAPSULE(S);?
     Route: 048
  13. PROXICAM [Concomitant]
     Active Substance: PIROXICAM
  14. TUMERIC/BROMELAIN [Concomitant]
  15. METFORMIN [Concomitant]
     Active Substance: METFORMIN HYDROCHLORIDE
  16. PROPRANOLOL [Concomitant]
     Active Substance: PROPRANOLOL HYDROCHLORIDE
  17. OXYGEN. [Concomitant]
     Active Substance: OXYGEN

REACTIONS (2)
  - Recalled product administered [None]
  - Adverse drug reaction [None]

NARRATIVE: CASE EVENT DATE: 20191101
